FAERS Safety Report 5378046-9 (Version None)
Quarter: 2007Q3

REPORT INFORMATION
  Report Type: 
  Country: None (occurrence: None)
  Receive Date: 20070704
  Receipt Date: 20070625
  Transmission Date: 20080115
  Serious: Yes (Hospitalization)
  Sender: FDA-Public Use
  Company Number: JP-SP-2007-02198

PATIENT
  Age: 74 Year
  Sex: Male

DRUGS (5)
  1. IMMUCYST [Suspect]
     Indication: BLADDER CANCER
     Route: 043
     Dates: start: 20060130, end: 20060320
  2. LOSARTAN POTASSIUM [Concomitant]
  3. CILNIDIPINE [Concomitant]
  4. BIFIDOBACTERIUM [Concomitant]
  5. INSULIN ASPART (GENETICAL RECOMBINATION) [Concomitant]

REACTIONS (1)
  - TUBERCULOSIS BLADDER [None]
